FAERS Safety Report 13148975 (Version 7)
Quarter: 2017Q1

REPORT INFORMATION
  Report Type: Report from Study
  Country: BR (occurrence: BR)
  Receive Date: 20170125
  Receipt Date: 20170316
  Transmission Date: 20170428
  Serious: Yes (Hospitalization, Congenital Anomaly, Other)
  Sender: FDA-Public Use
  Company Number: BR-VIIV HEALTHCARE LIMITED-BR2017GSK007932

PATIENT
  Age: 0 Year
  Sex: Female
  Weight: 62 kg

DRUGS (3)
  1. LAMIVUDINE AND ZIDOVUDINE [Suspect]
     Active Substance: LAMIVUDINE\ZIDOVUDINE
     Indication: HIV INFECTION
     Dosage: 450 MG, BID
     Route: 048
     Dates: start: 20161223
  2. CEFALEXINE [Concomitant]
     Active Substance: CEPHALEXIN
     Indication: FOLLICULITIS
     Dosage: UNK
     Route: 048
     Dates: start: 20161223, end: 20161230
  3. EFAVIRENZ [Suspect]
     Active Substance: EFAVIRENZ
     Indication: HIV INFECTION
     Dosage: 600 MG, 1D
     Route: 064
     Dates: start: 20161223

REACTIONS (1)
  - Foetal malformation [Recovered/Resolved]

NARRATIVE: CASE EVENT DATE: 20170116
